FAERS Safety Report 5702532-2 (Version None)
Quarter: 2008Q2

REPORT INFORMATION
  Report Type: 
  Country: None (occurrence: None)
  Receive Date: 20080408
  Receipt Date: 20080324
  Transmission Date: 20081010
  Serious: Yes (Life-Threatening, Hospitalization)
  Sender: FDA-Public Use
  Company Number: 2008002338

PATIENT
  Age: 56 Year
  Sex: Female

DRUGS (10)
  1. CETIRIZINE HCL [Suspect]
     Indication: DERMATITIS ATOPIC
     Dosage: 10 MG, ORAL
     Route: 048
     Dates: start: 20080115, end: 20080116
  2. CEFCAPENE PIVOXIL HYDROCHLORIDE (CEFCAPENE PIVOXIL HYDROCHLORIDE) [Suspect]
     Indication: CELLULITIS
     Dosage: 300 MG, ORAL
     Route: 048
     Dates: start: 20080115, end: 20080117
  3. REBAMIPIDE (REBAMIPIDE) [Suspect]
     Indication: PROPHYLAXIS
     Dosage: 300 MG, ORAL
     Route: 048
     Dates: start: 20080115, end: 20080117
  4. REBAMIPIDE (REBAMIPIDE) [Suspect]
     Indication: ULCER
     Dosage: 300 MG, ORAL
     Route: 048
     Dates: start: 20080115, end: 20080117
  5. CEFDINIR [Concomitant]
  6. TACROLIMUS [Concomitant]
  7. MOMETASONE FUROATE [Concomitant]
  8. BETAMETHASONE BUTYRATE PROPIONATE (BETAMETHASONE BUTYRATE PROPIONATE) [Concomitant]
  9. OLAPATADINE HYDROCHLORIDE (OLOPATADINE HYDROCHLORIDE) [Concomitant]
  10. PHENOBARBITAL TAB [Concomitant]

REACTIONS (10)
  - ARTERIAL THROMBOSIS [None]
  - ATRIAL FIBRILLATION [None]
  - BRAIN NATRIURETIC PEPTIDE INCREASED [None]
  - CARDIAC DISORDER [None]
  - CARDIOMEGALY [None]
  - CEREBRAL INFARCTION [None]
  - EMBOLISM [None]
  - FACIAL PALSY [None]
  - MITRAL VALVE INCOMPETENCE [None]
  - MYOCARDIAL INFARCTION [None]
